FAERS Safety Report 21525550 (Version 1)
Quarter: 2022Q4

REPORT INFORMATION
  Report Type: Spontaneous
  Country: US (occurrence: None)
  Receive Date: 20221028
  Receipt Date: 20221028
  Transmission Date: 20230113
  Serious: Yes (Hospitalization)
  Sender: FDA-Public Use
  Company Number: None

PATIENT
  Age: 69 Year
  Sex: Female
  Weight: 87.36 kg

DRUGS (13)
  1. LENALIDOMIDE [Suspect]
     Active Substance: LENALIDOMIDE
     Indication: Plasma cell myeloma
     Dosage: OTHER FREQUENCY : 14D ON7D OFF;?
     Route: 048
  2. AMLODIPINE [Concomitant]
  3. ASPIRIN [Concomitant]
     Active Substance: ASPIRIN
  4. ATORVASTATIN [Concomitant]
  5. LEVOTHYROXINE [Concomitant]
  6. LISINOPRIL [Concomitant]
  7. MAGOX [Concomitant]
  8. METOPROLOL [Concomitant]
  9. NEURONTIN [Concomitant]
  10. PEPCID [Concomitant]
  11. PLAVIX [Concomitant]
  12. POTASSIUM CHLORIDE ER [Concomitant]
  13. SERTRALINE [Concomitant]

REACTIONS (1)
  - Hospitalisation [None]
